FAERS Safety Report 5643916-0 (Version None)
Quarter: 2008Q1

REPORT INFORMATION
  Report Type: 
  Country: None (occurrence: None)
  Receive Date: 20080226
  Receipt Date: 20080213
  Transmission Date: 20080703
  Serious: Yes (Hospitalization)
  Sender: FDA-Public Use
  Company Number: 2005BI008989

PATIENT
  Age: 60 Year
  Sex: Female
  Weight: 51.2565 kg

DRUGS (6)
  1. AVONEX [Suspect]
     Indication: MULTIPLE SCLEROSIS
     Dosage: 30 UG;QW;IM
     Route: 030
     Dates: start: 20020621
  2. OXYTROL [Concomitant]
  3. VITAMIN B-12 [Concomitant]
  4. MICABID [Concomitant]
  5. TRAMADOL HCL [Concomitant]
  6. FOSAMAX [Concomitant]

REACTIONS (8)
  - ARTHRALGIA [None]
  - ASTHENIA [None]
  - ENDOMETRIOSIS [None]
  - FOOT FRACTURE [None]
  - GASTRIC DISORDER [None]
  - HAEMORRHOIDS [None]
  - HYPERTENSION [None]
  - RESTLESS LEGS SYNDROME [None]
